FAERS Safety Report 4834893-0 (Version None)
Quarter: 2005Q4

REPORT INFORMATION
  Report Type: 
  Country: None (occurrence: None)
  Receive Date: 20051122
  Receipt Date: 20051111
  Transmission Date: 20060501
  Serious: Yes (Other)
  Sender: FDA-Public Use
  Company Number: PHBS2005JP16555

PATIENT

DRUGS (2)
  1. SANOREX [Suspect]
     Indication: OBESITY
     Route: 048
  2. HERBAL EXTRACTS NOS [Concomitant]

REACTIONS (1)
  - RETINAL HAEMORRHAGE [None]
